FAERS Safety Report 7867134-0 (Version None)
Quarter: 2011Q4

REPORT INFORMATION
  Report Type: 
  Country: None (occurrence: None)
  Receive Date: 20111028
  Receipt Date: 20111024
  Transmission Date: 20120403
  Serious: Yes (Other)
  Sender: FDA-Public Use
  Company Number: US-TEVA-306293USA

PATIENT
  Sex: Female

DRUGS (3)
  1. INTERFERON BETA-1A [Concomitant]
  2. COPAXONE [Suspect]
     Indication: MULTIPLE SCLEROSIS
     Route: 058
     Dates: start: 20050101
  3. BETASERON [Concomitant]

REACTIONS (5)
  - ASTHENIA [None]
  - NAUSEA [None]
  - VOMITING [None]
  - INJECTION SITE REACTION [None]
  - CONVULSION [None]
